FAERS Safety Report 10726350 (Version 1)
Quarter: 2015Q1

REPORT INFORMATION
  Report Type: Spontaneous
  Country: US (occurrence: US)
  Receive Date: 20150121
  Receipt Date: 20150121
  Transmission Date: 20150721
  Serious: No
  Sender: FDA-Public Use
  Company Number: US-PFIZER INC-2015020905

PATIENT
  Age: 59 Year
  Sex: Female
  Weight: 43 kg

DRUGS (2)
  1. CHANTIX [Suspect]
     Active Substance: VARENICLINE TARTRATE
     Indication: SMOKING CESSATION THERAPY
     Dosage: 1 MG, 2X/DAY
     Route: 048
     Dates: start: 2012
  2. XANAX [Interacting]
     Active Substance: ALPRAZOLAM
     Indication: PANIC ATTACK
     Dosage: 0.25 MG, 4X/DAY
     Route: 048

REACTIONS (3)
  - Drug interaction [Unknown]
  - Nightmare [Recovered/Resolved]
  - Crying [Recovered/Resolved]
